FAERS Safety Report 18975738 (Version 1)
Quarter: 2021Q1

REPORT INFORMATION
  Report Type: Spontaneous
  Country: IN (occurrence: IN)
  Receive Date: 20210305
  Receipt Date: 20210305
  Transmission Date: 20210420
  Serious: Yes (Death)
  Sender: FDA-Public Use
  Company Number: IN-ELI_LILLY_AND_COMPANY-IN202103002739

PATIENT
  Age: 68 Year

DRUGS (1)
  1. ERBITUX [Suspect]
     Active Substance: CETUXIMAB
     Indication: SQUAMOUS CELL CARCINOMA OF HEAD AND NECK
     Dosage: 600 MG, UNKNOWN
     Route: 065
     Dates: start: 20210223

REACTIONS (1)
  - Death [Fatal]

NARRATIVE: CASE EVENT DATE: 20210223
